FAERS Safety Report 5873983-0 (Version None)
Quarter: 2008Q3

REPORT INFORMATION
  Report Type: 
  Country: None (occurrence: None)
  Receive Date: 20080908
  Receipt Date: 20080827
  Transmission Date: 20090109
  Serious: Yes (Hospitalization)
  Sender: FDA-Public Use
  Company Number: JP-MERCK-0808USA05458

PATIENT
  Age: 82 Year
  Sex: Female

DRUGS (11)
  1. SINGULAIR [Suspect]
     Route: 048
  2. URSO 250 [Suspect]
     Route: 048
  3. MUCODYNE [Suspect]
     Route: 048
  4. ASPIRIN [Suspect]
     Route: 048
  5. RENIVEZE [Suspect]
     Route: 048
  6. UNIPHYL LA [Suspect]
     Route: 048
  7. CLARITIN [Suspect]
     Route: 048
  8. AMLODIPINE BESYLATE [Suspect]
     Route: 048
  9. INTAL [Suspect]
  10. PULMICORT-100 [Suspect]
  11. KETOPROFEN [Suspect]
     Route: 061

REACTIONS (2)
  - ALLERGIC GRANULOMATOUS ANGIITIS [None]
  - LEUKOCYTOCLASTIC VASCULITIS [None]
